FAERS Safety Report 22879268 (Version 2)
Quarter: 2024Q1

REPORT INFORMATION
  Report Type: Spontaneous
  Country: US (occurrence: US)
  Receive Date: 20230829
  Receipt Date: 20240126
  Transmission Date: 20240410
  Serious: No
  Sender: FDA-Public Use
  Company Number: US-BRISTOL-MYERS SQUIBB COMPANY-2023-121734

PATIENT
  Age: 87 Year
  Sex: Male
  Weight: 106.14 kg

DRUGS (1)
  1. REVLIMID [Suspect]
     Active Substance: LENALIDOMIDE
     Indication: Myelodysplastic syndrome
     Dosage: EVERYOTHERDAY
     Route: 048

REACTIONS (2)
  - Diarrhoea [Unknown]
  - Off label use [Unknown]
